FAERS Safety Report 4449125-5 (Version None)
Quarter: 2004Q3

REPORT INFORMATION
  Report Type: 
  Country: None (occurrence: None)
  Receive Date: 20040910
  Receipt Date: 20040830
  Transmission Date: 20050211
  Serious: Yes (Life-Threatening)
  Sender: FDA-Public Use
  Company Number: 04H-083-0272038-00

PATIENT
  Age: 60 Year
  Sex: Female

DRUGS (1)
  1. DOBUTAMINE HCL [Suspect]
     Indication: STRESS ECHOCARDIOGRAM
     Dosage: 20 MCG/KG, INTRAVENOUS
     Route: 042

REACTIONS (4)
  - CARDIAC ARREST [None]
  - PROCEDURAL COMPLICATION [None]
  - SINUS ARREST [None]
  - SYNCOPE [None]
